FAERS Safety Report 5482093-6 (Version None)
Quarter: 2007Q4

REPORT INFORMATION
  Report Type: 
  Country: None (occurrence: None)
  Receive Date: 20071011
  Receipt Date: 20071005
  Transmission Date: 20080405
  Serious: Yes (Death, Hospitalization)
  Sender: FDA-Public Use
  Company Number: PHHO2007FR14725

PATIENT
  Age: 39 Year
  Sex: Male
  Weight: 62 kg

DRUGS (2)
  1. IMATINIB [Suspect]
     Indication: ACUTE LYMPHOCYTIC LEUKAEMIA
     Dosage: 400 MG, QD
     Route: 048
     Dates: start: 20070821
  2. HYPER-CVAD [Concomitant]
     Indication: ACUTE LYMPHOCYTIC LEUKAEMIA

REACTIONS (34)
  - ACUTE GRAFT VERSUS HOST DISEASE IN INTESTINE [None]
  - ACUTE GRAFT VERSUS HOST DISEASE IN LIVER [None]
  - ACUTE GRAFT VERSUS HOST DISEASE IN SKIN [None]
  - ACUTE RESPIRATORY DISTRESS SYNDROME [None]
  - ADENOVIRUS INFECTION [None]
  - APTYALISM [None]
  - BACTERIA STOOL IDENTIFIED [None]
  - BRONCHOPULMONARY ASPERGILLOSIS [None]
  - C-REACTIVE PROTEIN INCREASED [None]
  - CELL DEATH [None]
  - CHOLESTASIS [None]
  - CONJUNCTIVITIS [None]
  - COUGH [None]
  - DIARRHOEA [None]
  - DRY EYE [None]
  - ENTEROBACTER INFECTION [None]
  - EPSTEIN-BARR VIRUS INFECTION [None]
  - ERYTHEMA [None]
  - GENERAL PHYSICAL HEALTH DETERIORATION [None]
  - GRAFT VERSUS HOST DISEASE [None]
  - HEPATIC PAIN [None]
  - HEPATOCELLULAR DAMAGE [None]
  - HEPATOMEGALY [None]
  - HYPERBILIRUBINAEMIA [None]
  - HYPOALBUMINAEMIA [None]
  - HYPOGAMMAGLOBULINAEMIA [None]
  - HYPOPROTEINAEMIA [None]
  - JAUNDICE [None]
  - LUNG DISORDER [None]
  - MALNUTRITION [None]
  - OCULAR ICTERUS [None]
  - OEDEMA PERIPHERAL [None]
  - SEPTIC SHOCK [None]
  - SURGERY [None]
